FAERS Safety Report 25996233 (Version 1)
Quarter: 2025Q4

REPORT INFORMATION
  Report Type: Spontaneous
  Country: CN (occurrence: CN)
  Receive Date: 20251104
  Receipt Date: 20251104
  Transmission Date: 20260118
  Serious: Yes (Hospitalization)
  Sender: ELI LILLY AND COMPANY
  Company Number: CN-Merck Healthcare KGaA-2025054914

PATIENT
  Age: 51 Year
  Sex: Female
  Weight: 46 kg

DRUGS (8)
  1. ERBITUX [Suspect]
     Active Substance: CETUXIMAB
     Indication: Lip and/or oral cavity cancer
     Dosage: 100 MG, UNKNOWN
     Route: 041
     Dates: start: 20250918
  2. DOCETAXEL [Suspect]
     Active Substance: DOCETAXEL
     Indication: Lip and/or oral cavity cancer
     Dosage: 100 MG, DAILY
     Route: 041
     Dates: start: 20250918, end: 20250918
  3. NEDAPLATIN [Suspect]
     Active Substance: NEDAPLATIN
     Indication: Lip and/or oral cavity cancer
     Dosage: 105 MG, DAILY
     Route: 041
     Dates: start: 20250918, end: 20250918
  4. SINTILIMAB [Suspect]
     Active Substance: SINTILIMAB
     Indication: Lip and/or oral cavity cancer
     Dosage: 200 MG, DAILY
     Route: 041
     Dates: start: 20250918, end: 20250918
  5. SODIUM CHLORIDE [Concomitant]
     Active Substance: SODIUM CHLORIDE
     Indication: Lip and/or oral cavity cancer
     Dosage: 250 ML, DAILY
     Route: 041
     Dates: start: 20250918, end: 20250918
  6. SODIUM CHLORIDE [Concomitant]
     Active Substance: SODIUM CHLORIDE
     Dosage: 500 ML, DAILY
     Route: 041
     Dates: start: 20250918, end: 20250918
  7. SODIUM CHLORIDE [Concomitant]
     Active Substance: SODIUM CHLORIDE
     Dosage: 200 ML, DAILY
     Route: 041
     Dates: start: 20250918, end: 20250918
  8. SODIUM CHLORIDE [Concomitant]
     Active Substance: SODIUM CHLORIDE
     Dosage: 100 ML, DAILY
     Route: 041
     Dates: start: 20250918, end: 20250918

REACTIONS (1)
  - Myelosuppression [Recovering/Resolving]

NARRATIVE: CASE EVENT DATE: 20250927
